FAERS Safety Report 14566972 (Version 1)
Quarter: 2018Q1

REPORT INFORMATION
  Report Type: Spontaneous
  Country: DK (occurrence: DK)
  Receive Date: 20180223
  Receipt Date: 20180223
  Transmission Date: 20180509
  Serious: Yes (Other)
  Sender: FDA-Public Use
  Company Number: DK-B.I. PHARMACEUTICALS,INC./RIDGEFIELD-2018-12-000662

PATIENT
  Age: 73 Year
  Sex: Male
  Weight: 93 kg

DRUGS (13)
  1. ELIQUIS [Concomitant]
     Active Substance: APIXABAN
     Indication: ATRIAL FIBRILLATION
     Dosage: STYRKE: 2.5 MG
     Route: 048
     Dates: start: 20170619
  2. ALLOPURINOL. [Concomitant]
     Active Substance: ALLOPURINOL
     Indication: GOUT
     Dosage: STYRKE: 100 MG
     Route: 048
     Dates: start: 20120522
  3. CARVEDILOL TEVA [Concomitant]
     Active Substance: CARVEDILOL
     Indication: CARDIAC FAILURE
     Dosage: STYRKE: 25 MG
     Route: 048
     Dates: start: 20131104
  4. NOVORAPID [Concomitant]
     Active Substance: INSULIN ASPART
     Indication: DIABETES MELLITUS
     Dosage: STRENGTH: 100 U/ML - DOSE: 4 UNIT PER NEED MAXIMUM 7 TIMES A DAY
     Route: 058
     Dates: start: 20120123
  5. BURINEX [Concomitant]
     Active Substance: BUMETANIDE
     Indication: CARDIAC FAILURE
     Dosage: STRENGTH: 1 MG- DOSE: 4 TABLETS AT 08:00, 4 TABLETS AT 12:00, 3 TABLETS AT 15:00
     Route: 048
     Dates: start: 20121024
  6. KALEORID [Concomitant]
     Active Substance: POTASSIUM CHLORIDE
     Indication: MINERAL SUPPLEMENTATION
     Dosage: DOSE: 2 TABLETS IN THE MORNING, 1 TABLET EVENING
     Route: 048
     Dates: start: 20170207
  7. DULCOLAX NOS [Concomitant]
     Active Substance: BISACODYL OR DOCUSATE SODIUM
     Indication: CONSTIPATION
     Dosage: STYRKE: 5 MG
     Route: 048
     Dates: start: 20170623
  8. LIPISTAD [Concomitant]
     Indication: HYPERCHOLESTEROLAEMIA
     Dosage: STYRKE: 40 MG
     Route: 048
     Dates: start: 20120605
  9. ALENDRONIC ACID [Concomitant]
     Active Substance: ALENDRONIC ACID
     Indication: OSTEOPENIA
     Dosage: STYRKE: 70 MG
     Route: 048
     Dates: start: 20170309
  10. PANTOPRAZOLE TEVA [Concomitant]
     Active Substance: PANTOPRAZOLE SODIUM
     Indication: GASTROOESOPHAGEAL REFLUX DISEASE
     Dosage: STYRKE: 40 MG
     Route: 048
     Dates: start: 20170203
  11. PREDNISOLON [Concomitant]
     Active Substance: PREDNISOLONE
     Indication: ADRENOCORTICAL STEROID THERAPY
     Dosage: STYRKE: 5 MG
     Route: 048
     Dates: start: 20160722
  12. LANTUS [Concomitant]
     Active Substance: INSULIN GLARGINE
     Indication: DIABETES MELLITUS
     Dosage: STRENGTH: 100 U/ML- DOSE: 50 UNITS MORNING, 40 UNITS BEFORE BEDTIME
     Route: 058
     Dates: start: 20150504
  13. OFEV [Suspect]
     Active Substance: NINTEDANIB
     Indication: IDIOPATHIC PULMONARY FIBROSIS
     Dosage: STYRKE: 150 MG
     Route: 048
     Dates: start: 20171128, end: 20171201

REACTIONS (3)
  - Respiration abnormal [Recovered/Resolved]
  - Dyspnoea [Recovered/Resolved]
  - Cardiac failure [Recovered/Resolved]

NARRATIVE: CASE EVENT DATE: 20171128
